FAERS Safety Report 22061128 (Version 1)
Quarter: 2023Q1

REPORT INFORMATION
  Report Type: Spontaneous
  Country: US (occurrence: US)
  Receive Date: 20230303
  Receipt Date: 20230303
  Transmission Date: 20230417
  Serious: No
  Sender: FDA-Public Use
  Company Number: US-009507513-2303USA001146

PATIENT
  Sex: Male
  Weight: 103.4 kg

DRUGS (2)
  1. KEYTRUDA [Suspect]
     Active Substance: PEMBROLIZUMAB
     Indication: Metastasis
  2. LENVATINIB MESYLATE [Suspect]
     Active Substance: LENVATINIB MESYLATE
     Indication: Metastasis
     Dosage: 18 MILLIGRAM, QD; STRENGHT: 1-10MG/2-4 MG
     Route: 048
     Dates: start: 202204

REACTIONS (7)
  - Hypertension [Unknown]
  - Sinus disorder [Unknown]
  - Nasal congestion [Unknown]
  - Tissue discolouration [Unknown]
  - Candida infection [Unknown]
  - Skin disorder [Unknown]
  - Product use issue [Unknown]

NARRATIVE: CASE EVENT DATE: 20220101
